FAERS Safety Report 7874806-0 (Version None)
Quarter: 2011Q4

REPORT INFORMATION
  Report Type: 
  Country: None (occurrence: None)
  Receive Date: 20111031
  Receipt Date: 20111025
  Transmission Date: 20120403
  Serious: Yes (Other)
  Sender: FDA-Public Use
  Company Number: US-JNJFOC-20111011773

PATIENT
  Age: 52 Year
  Sex: Female

DRUGS (3)
  1. ULTRAM [Suspect]
     Indication: PRODUCT USED FOR UNKNOWN INDICATION
     Route: 065
  2. AVONEX [Suspect]
     Indication: MULTIPLE SCLEROSIS
     Route: 030
     Dates: start: 20100123
  3. AVONEX [Suspect]
     Route: 030
     Dates: start: 20060317, end: 20071126

REACTIONS (3)
  - BREAST CANCER [None]
  - LIVER DISORDER [None]
  - CONVULSION [None]
